FAERS Safety Report 13439719 (Version 1)
Quarter: 2017Q2

REPORT INFORMATION
  Report Type: Report from Study
  Country: US (occurrence: US)
  Receive Date: 20170413
  Receipt Date: 20170413
  Transmission Date: 20170830
  Serious: Yes (Hospitalization, Other)
  Sender: FDA-Public Use
  Company Number: US-ROCHE-1917556

PATIENT
  Age: 75 Year
  Sex: Female

DRUGS (1)
  1. ROCEPHIN [Suspect]
     Active Substance: CEFTRIAXONE SODIUM
     Indication: URINARY TRACT INFECTION
     Route: 065
     Dates: start: 201504, end: 201504

REACTIONS (9)
  - Hypersensitivity [Unknown]
  - Oedema [Recovered/Resolved]
  - Asthenia [Recovered/Resolved]
  - Pruritus [Recovered/Resolved]
  - Coma [Recovered/Resolved]
  - Renal impairment [Not Recovered/Not Resolved]
  - Renal failure [Not Recovered/Not Resolved]
  - Erythema [Unknown]
  - Nausea [Recovered/Resolved]
